FAERS Safety Report 8029130-2 (Version None)
Quarter: 2012Q1

REPORT INFORMATION
  Report Type: 
  Country: None (occurrence: None)
  Receive Date: 20120106
  Receipt Date: 20120102
  Transmission Date: 20120608
  Serious: Yes (Other)
  Sender: FDA-Public Use
  Company Number: PHHY2012HU000483

PATIENT
  Sex: Male

DRUGS (4)
  1. TEGRETOL-XR [Suspect]
     Indication: HERPES ZOSTER
     Dosage: 200 MG, DAILY
     Dates: start: 20110901, end: 20110915
  2. TELVIRAN [Concomitant]
     Indication: HERPES ZOSTER
     Dosage: 5X800 MG, DAILY
     Dates: start: 20110830, end: 20110903
  3. ZOCOR [Concomitant]
     Indication: HYPERLIPIDAEMIA
     Dosage: 20 MG, DAILY
     Dates: start: 20091020
  4. RAMIPRIL [Concomitant]
     Indication: HYPERTENSION
     Dosage: 10 MG, DAILY
     Dates: start: 20061003

REACTIONS (2)
  - HERPES ZOSTER DISSEMINATED [None]
  - PLATELET COUNT DECREASED [None]
